FAERS Safety Report 17652484 (Version 1)
Quarter: 2020Q2

REPORT INFORMATION
  Report Type: Report from Study
  Country: CA (occurrence: CA)
  Receive Date: 20200409
  Receipt Date: 20200409
  Transmission Date: 20200713
  Serious: Yes (Other)
  Sender: FDA-Public Use
  Company Number: CA-SAMSUNG BIOEPIS-SB-2020-11565

PATIENT
  Sex: Male
  Weight: 77 kg

DRUGS (1)
  1. RENFLEXIS [Suspect]
     Active Substance: INFLIXIMAB-ABDA
     Indication: CROHN^S DISEASE
     Route: 042
     Dates: start: 20200314

REACTIONS (4)
  - Chills [Unknown]
  - Vomiting [Unknown]
  - Pyrexia [Unknown]
  - Hyperhidrosis [Unknown]
